FAERS Safety Report 7643531-3 (Version None)
Quarter: 2011Q3

REPORT INFORMATION
  Report Type: 
  Country: None (occurrence: None)
  Receive Date: 20110729
  Receipt Date: 20110720
  Transmission Date: 20111222
  Serious: Yes (Other)
  Sender: FDA-Public Use
  Company Number: JP-JNJFOC-20100403653

PATIENT
  Age: 56 Year
  Sex: Male
  Weight: 66 kg

DRUGS (5)
  1. CODEINE SULFATE [Concomitant]
     Indication: PAIN
     Dosage: 100MG TO 200MG
     Route: 048
  2. PROCHLORPERAZINE [Suspect]
     Indication: PROPHYLAXIS
     Route: 048
     Dates: start: 20100301, end: 20100401
  3. MORPHINE HCL ELIXIR [Concomitant]
     Indication: PAIN
     Route: 065
  4. FENTANYL [Suspect]
     Indication: PAIN
     Route: 062
     Dates: start: 20100201, end: 20100301
  5. FENTANYL [Suspect]
     Route: 062
     Dates: start: 20100301, end: 20100401

REACTIONS (5)
  - SUICIDAL IDEATION [None]
  - RESTLESSNESS [None]
  - WITHDRAWAL SYNDROME [None]
  - NAUSEA [None]
  - TREATMENT NONCOMPLIANCE [None]
